FAERS Safety Report 11049230 (Version 1)
Quarter: 2015Q2

REPORT INFORMATION
  Report Type: Spontaneous
  Country: US (occurrence: US)
  Receive Date: 20150420
  Receipt Date: 20150420
  Transmission Date: 20150821
  Serious: Yes (Hospitalization)
  Sender: FDA-Public Use
  Company Number: US-ASTRAZENECA-2015SE34722

PATIENT
  Age: 13 Month
  Sex: Male
  Weight: 7.5 kg

DRUGS (5)
  1. SYNAGIS [Suspect]
     Active Substance: PALIVIZUMAB
     Dosage: 15 MG/KG, MONTHLY , 50MG VIAL
     Route: 030
     Dates: start: 201501
  2. SYNAGIS [Suspect]
     Active Substance: PALIVIZUMAB
     Dosage: 15 MG/KG, MONTHLY 100MG VIAL
     Route: 030
  3. EPINEPHRINE. [Concomitant]
     Active Substance: EPINEPHRINE
  4. POLY-VI-SOL [Concomitant]
     Dosage: 750-35/ML DROPS 1 DOSE DAILY
  5. ALBUTEROL SULPHATE [Concomitant]
     Active Substance: ALBUTEROL
     Dosage: AS NEEDED
     Route: 055

REACTIONS (6)
  - Clostridium difficile infection [Recovering/Resolving]
  - Nasopharyngitis [Recovered/Resolved]
  - Respiratory disorder [Recovered/Resolved]
  - Rhinorrhoea [Recovered/Resolved]
  - Diarrhoea [Recovering/Resolving]
  - Dehydration [Recovering/Resolving]

NARRATIVE: CASE EVENT DATE: 201503
